FAERS Safety Report 4820964-1 (Version None)
Quarter: 2005Q4

REPORT INFORMATION
  Report Type: 
  Country: None (occurrence: None)
  Receive Date: 20051103
  Receipt Date: 20051019
  Transmission Date: 20060501
  Serious: Yes (Death)
  Sender: FDA-Public Use
  Company Number: DSA_81461_2005

PATIENT
  Age: 45 Year
  Sex: Female
  Weight: 70.5343 kg

DRUGS (19)
  1. XYREM [Suspect]
     Indication: FIBROMYALGIA
     Dosage: 3 G TWICE NIGHTLY PO
     Route: 048
     Dates: start: 20050707, end: 20050802
  2. XYREM [Suspect]
     Indication: SLEEP DISORDER
     Dosage: 3 G TWICE NIGHTLY PO
     Route: 048
     Dates: start: 20050707, end: 20050802
  3. NEURONTIN [Concomitant]
  4. KLONOPIN [Concomitant]
  5. TESTOSTERONE [Concomitant]
  6. VICOPROFEN [Concomitant]
  7. CELEXA [Concomitant]
  8. EFFEXOR [Concomitant]
  9. SOMA [Concomitant]
  10. MAGNESIUM WITH POTASSIUM ASPARTATE [Concomitant]
  11. MUCOSAGEN [Concomitant]
  12. DOXEPIN HCL [Concomitant]
  13. MULTI-VITAMIN [Concomitant]
  14. LORTAB [Concomitant]
  15. PROCAINE HCL [Concomitant]
  16. PROMETRIUM [Concomitant]
  17. TAURINE [Concomitant]
  18. ASTELINE [Concomitant]
  19. HYDROCODONE [Concomitant]

REACTIONS (2)
  - CARDIAC DISORDER [None]
  - LOSS OF CONSCIOUSNESS [None]
